FAERS Safety Report 11398813 (Version 1)
Quarter: 2015Q3

REPORT INFORMATION
  Report Type: Spontaneous
  Country: US (occurrence: US)
  Receive Date: 20150820
  Receipt Date: 20150820
  Transmission Date: 20151125
  Serious: No
  Sender: FDA-Public Use
  Company Number: US-SUN PHARMACEUTICAL INDUSTRIES LTD-2015US-97716

PATIENT
  Sex: Male

DRUGS (1)
  1. SULPHAMETHOXAZOLE/TRIMETHOPRIM [Suspect]
     Active Substance: SULFAMETHOXAZOLE\TRIMETHOPRIM
     Indication: PRODUCT USED FOR UNKNOWN INDICATION
     Dosage: 1 DF, BID
     Route: 065

REACTIONS (7)
  - Skin discolouration [Recovered/Resolved]
  - Gait disturbance [Unknown]
  - Rash [Recovered/Resolved]
  - Tenderness [Unknown]
  - Hypersensitivity [Unknown]
  - Peripheral swelling [Recovered/Resolved]
  - Pain [Unknown]
